FAERS Safety Report 24660315 (Version 1)
Quarter: 2024Q4

REPORT INFORMATION
  Report Type: Spontaneous
  Country: US (occurrence: US)
  Receive Date: 20241125
  Receipt Date: 20241125
  Transmission Date: 20250114
  Serious: No
  Sender: BAYER HEALTHCARE LLC
  Company Number: US-BAYER-2024A166982

PATIENT
  Sex: Female

DRUGS (1)
  1. MIRALAX [Suspect]
     Active Substance: POLYETHYLENE GLYCOL 3350
     Indication: Diverticulitis
     Dosage: 17 G
     Route: 048
     Dates: end: 20241122

REACTIONS (3)
  - Faeces discoloured [Not Recovered/Not Resolved]
  - Product prescribing issue [None]
  - Expired product administered [None]

NARRATIVE: CASE EVENT DATE: 20240601
